FAERS Safety Report 9068257 (Version 1)
Quarter: 2013Q1

REPORT INFORMATION
  Report Type: Spontaneous
  Country: US (occurrence: US)
  Receive Date: 20130206
  Receipt Date: 20130206
  Transmission Date: 20140127
  Serious: Yes (Death)
  Sender: FDA-Public Use
  Company Number: US-NICOBRDEVP-2013-01791

PATIENT
  Age: 70 Year
  Sex: Male

DRUGS (4)
  1. PREDNISONE (UNKNOWN) [Suspect]
     Indication: HENOCH-SCHONLEIN PURPURA
     Dosage: 60 MG DAILY; CONTINUED AFTER METHYLPREDNISOLONE PULSE THERAPY, AT 1 MG/KG
     Route: 048
  2. METHYLPREDNISOLONE ACETATE [Suspect]
     Indication: HENOCH-SCHONLEIN PURPURA
     Dosage: 500 MG, DAILY
     Route: 042
  3. CYCLOPHOSPHAMIDE [Suspect]
     Indication: HENOCH-SCHONLEIN PURPURA
     Dosage: 2 MG/KG, DAILY
     Route: 042
     Dates: start: 20110817, end: 20110903
  4. MESNA DELTA FARMA [Concomitant]
     Indication: PROPHYLAXIS
     Dosage: UNK, UNKNOWN
     Route: 065
     Dates: start: 20110803

REACTIONS (12)
  - Septic shock [Fatal]
  - Multi-organ failure [Fatal]
  - Small intestinal haemorrhage [Fatal]
  - Condition aggravated [Fatal]
  - Pneumonia staphylococcal [Fatal]
  - Klebsiella infection [Fatal]
  - Device related infection [Fatal]
  - Clostridium difficile colitis [Fatal]
  - Anastomotic leak [Fatal]
  - Pancytopenia [Fatal]
  - Shock haemorrhagic [None]
  - Renal failure [None]
